FAERS Safety Report 4320366-0 (Version None)
Quarter: 2004Q1

REPORT INFORMATION
  Report Type: 
  Country: None (occurrence: None)
  Receive Date: 20040317
  Receipt Date: 20040302
  Transmission Date: 20041129
  Serious: Yes (Hospitalization)
  Sender: FDA-Public Use
  Company Number: 2004AP01016

PATIENT
  Age: 75 Year
  Sex: Male

DRUGS (6)
  1. IRESSA [Suspect]
     Indication: METASTASIS
     Dosage: 250 MG DAILY PO
     Route: 048
     Dates: start: 20031127, end: 20031225
  2. IRESSA [Suspect]
     Indication: THYMIC CANCER METASTATIC
     Dosage: 250 MG DAILY PO
     Route: 048
     Dates: start: 20031127, end: 20031225
  3. RADIOTHERAPY [Concomitant]
  4. ENDOXAN [Concomitant]
  5. CISPLATIN [Concomitant]
  6. ADRIAMYCIN PFS [Concomitant]

REACTIONS (3)
  - METASTASES TO LUNG [None]
  - PITTING OEDEMA [None]
  - PSORIASIS [None]
